FAERS Safety Report 13676946 (Version 2)
Quarter: 2017Q3

REPORT INFORMATION
  Report Type: Report from Study
  Country: US (occurrence: US)
  Receive Date: 20170622
  Receipt Date: 20170826
  Transmission Date: 20171127
  Serious: Yes (Other)
  Sender: FDA-Public Use
  Company Number: US-AMGEN-USASL2017093267

PATIENT
  Age: 54 Year
  Sex: Male

DRUGS (2)
  1. REPATHA [Suspect]
     Active Substance: EVOLOCUMAB
     Indication: BLOOD CHOLESTEROL INCREASED
     Dosage: 140 MG, Q3WK
     Route: 065
  2. REPATHA [Suspect]
     Active Substance: EVOLOCUMAB
     Indication: HYPERCHOLESTEROLAEMIA
     Dosage: 140 MG, QMO
     Route: 065

REACTIONS (10)
  - Diverticulitis [Unknown]
  - Rheumatoid arthritis [Unknown]
  - Gastric disorder [Unknown]
  - Gastritis [Unknown]
  - Off label use [Unknown]
  - Drug dose omission [Unknown]
  - Colitis [Unknown]
  - Granuloma [Unknown]
  - Arterial stent insertion [Unknown]
  - Dry eye [Unknown]

NARRATIVE: CASE EVENT DATE: 201612
